FAERS Safety Report 12220810 (Version 3)
Quarter: 2016Q2

REPORT INFORMATION
  Report Type: Spontaneous
  Country: US (occurrence: US)
  Receive Date: 20160330
  Receipt Date: 20160511
  Transmission Date: 20160815
  Serious: No
  Sender: FDA-Public Use
  Company Number: US-PFIZER INC-2016146384

PATIENT
  Age: 68 Year
  Sex: Female
  Weight: 79 kg

DRUGS (7)
  1. ATENOLOL. [Concomitant]
     Active Substance: ATENOLOL
     Indication: HYPERTENSION
     Dosage: 25 MG, 1X/DAY
     Route: 048
  2. PREMARIN [Suspect]
     Active Substance: ESTROGENS, CONJUGATED
     Indication: ROUTINE HEALTH MAINTENANCE
     Dosage: 1.25 MG, 1X/DAY
     Route: 048
     Dates: start: 1979
  3. ESTRACE [Concomitant]
     Active Substance: ESTRADIOL
     Dosage: 0.1 MG, UNK (0.1 MG 2 WK )
  4. PREMARIN [Suspect]
     Active Substance: ESTROGENS, CONJUGATED
     Indication: HORMONE REPLACEMENT THERAPY
     Dosage: UNK
     Route: 048
  5. AMITRIPTYLINE [Concomitant]
     Active Substance: AMITRIPTYLINE
     Indication: MIGRAINE
     Dosage: 50 MG, DAILY (25 MG TWO TABLETS)
     Route: 048
  6. BACTRIM [Concomitant]
     Active Substance: SULFAMETHOXAZOLE\TRIMETHOPRIM
     Dosage: 100 MG, DAILY (ALTERNATE BACTRIM OR TRIMETHOPRIM BY MONTH)
  7. TRIMETHOPRIM. [Concomitant]
     Active Substance: TRIMETHOPRIM
     Indication: URINARY TRACT INFECTION
     Dosage: 100 MG, DAILY (ALTERNATE BACTRIM OR TRIMETHOPRIM BY MONTH)
     Route: 048
     Dates: start: 2014

REACTIONS (6)
  - Sleep disorder [Recovered/Resolved]
  - Insomnia [Recovered/Resolved]
  - Feeling abnormal [Recovered/Resolved]
  - Restlessness [Recovered/Resolved]
  - Memory impairment [Recovered/Resolved]
  - Nervousness [Recovered/Resolved]
